FAERS Safety Report 7827942-9 (Version None)
Quarter: 2011Q4

REPORT INFORMATION
  Report Type: 
  Country: None (occurrence: None)
  Receive Date: 20111018
  Receipt Date: 20111005
  Transmission Date: 20120403
  Serious: Yes (Other)
  Sender: FDA-Public Use
  Company Number: 1070965

PATIENT

DRUGS (5)
  1. ETOPOSIDE [Suspect]
     Indication: LANGERHANS' CELL HISTIOCYTOSIS
  2. PREDNISOLONE [Suspect]
     Indication: LANGERHANS' CELL HISTIOCYTOSIS
  3. CYTARABINE [Suspect]
     Indication: LANGERHANS' CELL HISTIOCYTOSIS
  4. VINBLASTINE SULFATE [Suspect]
     Indication: LANGERHANS' CELL HISTIOCYTOSIS
  5. CLADRIBINE [Suspect]
     Indication: LANGERHANS' CELL HISTIOCYTOSIS

REACTIONS (4)
  - SEPSIS [None]
  - PNEUMATOSIS INTESTINALIS [None]
  - TOXICITY TO VARIOUS AGENTS [None]
  - PANCYTOPENIA [None]
